FAERS Safety Report 9270014 (Version 1)
Quarter: 2013Q2

REPORT INFORMATION
  Report Type: Spontaneous
  Country: US (occurrence: US)
  Receive Date: 20130502
  Receipt Date: 20130502
  Transmission Date: 20140414
  Serious: Yes (Other)
  Sender: FDA-Public Use
  Company Number: US-RB-053080-13

PATIENT
  Age: 33 Year
  Sex: Female

DRUGS (1)
  1. SUBOXONE FILM [Suspect]
     Indication: PRODUCT USED FOR UNKNOWN INDICATION
     Dosage: SUBOXONE FILM; DOSING DETAILS NOT PROVIDED
     Route: 065

REACTIONS (2)
  - Endometrial disorder [Recovered/Resolved]
  - Gastrointestinal disorder [Recovered/Resolved]
